FAERS Safety Report 18582749 (Version 2)
Quarter: 2020Q4

REPORT INFORMATION
  Report Type: Report from Study
  Country: US (occurrence: US)
  Receive Date: 20201205
  Receipt Date: 20201229
  Transmission Date: 20210114
  Serious: Yes (Hospitalization, Other)
  Sender: FDA-Public Use
  Company Number: US-UCBSA-2020048789

PATIENT
  Age: 57 Year
  Sex: Male

DRUGS (3)
  1. LACOSAMIDE. [Suspect]
     Active Substance: LACOSAMIDE
     Indication: EPILEPSY
     Dosage: 100 MILLIGRAM, 2X/DAY (BID)
  2. LACOSAMIDE. [Suspect]
     Active Substance: LACOSAMIDE
     Indication: SEIZURE
     Dosage: PATIENT REDUCED DOSE AND DISCONTINUED HIMSELF
  3. LACOSAMIDE. [Suspect]
     Active Substance: LACOSAMIDE
     Dosage: 100 MILLIGRAM, 2X/DAY (BID)

REACTIONS (3)
  - Aphasia [Recovered/Resolved]
  - Cognitive disorder [Not Recovered/Not Resolved]
  - Intentional product misuse [Unknown]

NARRATIVE: CASE EVENT DATE: 20201124
